FAERS Safety Report 25737385 (Version 1)
Quarter: 2025Q3

REPORT INFORMATION
  Report Type: Spontaneous
  Country: US (occurrence: US)
  Receive Date: 20250828
  Receipt Date: 20250828
  Transmission Date: 20251020
  Serious: No
  Sender: ELI LILLY AND COMPANY
  Company Number: US-ELI_LILLY_AND_COMPANY-US202508025256

PATIENT
  Sex: Male

DRUGS (5)
  1. ERBITUX [Suspect]
     Active Substance: CETUXIMAB
     Indication: Colon cancer metastatic
     Route: 065
  2. BRAFTOVI [Suspect]
     Active Substance: ENCORAFENIB
     Indication: Colon cancer metastatic
     Dosage: 3 DOSAGE FORM, DAILY
     Route: 048
     Dates: start: 20250613, end: 20250730
  3. BRAFTOVI [Suspect]
     Active Substance: ENCORAFENIB
     Dosage: 4 DOSAGE FORM, DAILY
     Route: 048
     Dates: start: 20250731
  4. BRAFTOVI [Suspect]
     Active Substance: ENCORAFENIB
     Dosage: 3 DOSAGE FORM, DAILY
     Route: 048
     Dates: start: 202508
  5. FLUOROURACIL\LEUCOVORIN CALCIUM\OXALIPLATIN [Concomitant]
     Active Substance: FLUOROURACIL\LEUCOVORIN CALCIUM\OXALIPLATIN
     Indication: Colon cancer metastatic

REACTIONS (1)
  - Neuropathy peripheral [Unknown]

NARRATIVE: CASE EVENT DATE: 20250806
